FAERS Safety Report 4959678-6 (Version None)
Quarter: 2006Q1

REPORT INFORMATION
  Report Type: 
  Country: None (occurrence: None)
  Receive Date: 20060331
  Receipt Date: 20060322
  Transmission Date: 20060701
  Serious: Yes (Other)
  Sender: FDA-Public Use
  Company Number: PHBS2006BR04515

PATIENT
  Age: 38 Year
  Sex: Male

DRUGS (4)
  1. CODATEN [Suspect]
     Indication: RENAL PAIN
     Dosage: 1 DF, Q12H
     Route: 048
     Dates: start: 20060320, end: 20060322
  2. DORSPAN [Concomitant]
     Indication: RENAL PAIN
     Route: 048
     Dates: start: 20060316
  3. CIPROXIN [Concomitant]
     Dosage: UNK, UNK
     Dates: start: 20060316, end: 20060319
  4. NORFLOXACIN [Concomitant]
     Indication: RENAL PAIN
     Dates: start: 20060316, end: 20060319

REACTIONS (6)
  - ABDOMINAL PAIN [None]
  - DIFFICULTY IN WALKING [None]
  - HYPOAESTHESIA [None]
  - PARAESTHESIA [None]
  - PRURITUS [None]
  - URETERAL CATHETERISATION [None]
